FAERS Safety Report 13393131 (Version 1)
Quarter: 2017Q1

REPORT INFORMATION
  Report Type: Report from Study
  Country: US (occurrence: US)
  Receive Date: 20170331
  Receipt Date: 20170331
  Transmission Date: 20170429
  Serious: Yes (Death)
  Sender: FDA-Public Use
  Company Number: US-PFIZER INC-2017135036

PATIENT
  Sex: Male

DRUGS (4)
  1. CAPECITABINE. [Suspect]
     Active Substance: CAPECITABINE
     Indication: CHOLANGIOCARCINOMA
     Dosage: 680 MG/M2, CYCLIC (TWICE DAILY FOR DAYS 1-14)
     Route: 048
  2. BEVACIZUMAB [Suspect]
     Active Substance: BEVACIZUMAB
     Indication: CHOLANGIOCARCINOMA
     Dosage: 7.5 MG/KG, CYCLIC (ON DAY 1)
     Route: 042
  3. EVEROLIMUS [Suspect]
     Active Substance: EVEROLIMUS
     Indication: CHOLANGIOCARCINOMA
     Dosage: 5 MG, CYCLIC (ONCE DAILY FOR DAYS 1-21)
     Route: 048
  4. OXALIPLATIN. [Suspect]
     Active Substance: OXALIPLATIN
     Indication: CHOLANGIOCARCINOMA
     Dosage: 100 MG/M2, CYCLIC (ON DAY 1 OF FIRST 6 CYCLES ONLY)
     Route: 042

REACTIONS (1)
  - Gastrointestinal haemorrhage [Fatal]
